FAERS Safety Report 6411873-5 (Version None)
Quarter: 2009Q4

REPORT INFORMATION
  Report Type: 
  Country: None (occurrence: None)
  Receive Date: 20091023
  Receipt Date: 20091009
  Transmission Date: 20100525
  Serious: No
  Sender: FDA-Public Use
  Company Number: US-ROXANE LABORATORIES, INC.-2009-RO-01039RO

PATIENT

DRUGS (1)
  1. AZATHIOPRINE [Suspect]

REACTIONS (1)
  - MALAISE [None]
